FAERS Safety Report 16892751 (Version 1)
Quarter: 2019Q4

REPORT INFORMATION
  Report Type: Spontaneous
  Country: US (occurrence: US)
  Receive Date: 20191007
  Receipt Date: 20191007
  Transmission Date: 20200122
  Serious: Yes (Hospitalization, Other)
  Sender: FDA-Public Use
  Company Number: US-ASTRAZENECA-2019SF40439

PATIENT
  Sex: Female

DRUGS (1)
  1. BYDUREON [Suspect]
     Active Substance: EXENATIDE
     Route: 058

REACTIONS (5)
  - Facial bones fracture [Unknown]
  - Wrong technique in product usage process [Unknown]
  - Fall [Unknown]
  - Eye contusion [Unknown]
  - Asthenia [Unknown]

NARRATIVE: CASE EVENT DATE: 20190926
